FAERS Safety Report 14778574 (Version 2)
Quarter: 2018Q4

REPORT INFORMATION
  Report Type: Spontaneous
  Country: JP (occurrence: JP)
  Receive Date: 20180419
  Receipt Date: 20181026
  Transmission Date: 20190204
  Serious: Yes (Hospitalization, Other)
  Sender: FDA-Public Use
  Company Number: JP-AMGEN-JPNSP2018053674

PATIENT
  Age: 55 Year
  Sex: Female

DRUGS (10)
  1. DEXART [Suspect]
     Active Substance: DEXAMETHASONE SODIUM PHOSPHATE
     Indication: BREAST CANCER
     Dosage: 8.25 MG, 1X/2 WEEKS
     Route: 042
     Dates: start: 20160926, end: 20161108
  2. DOCETAXEL. [Suspect]
     Active Substance: DOCETAXEL
     Indication: BREAST CANCER
     Dosage: 108 MG, 1X/3 WEEKS
     Route: 042
     Dates: start: 20161122, end: 20161122
  3. EPIRUBICIN HYDROCHLORIDE. [Suspect]
     Active Substance: EPIRUBICIN HYDROCHLORIDE
     Indication: BREAST CANCER
     Dosage: 130 MG, 1X/2 WEEKS
     Route: 041
     Dates: start: 20160926, end: 20161108
  4. DECADRON [Suspect]
     Active Substance: DEXAMETHASONE
     Dosage: 4 MG, BID
     Route: 048
     Dates: start: 20161108, end: 20161109
  5. ENDOXAN                            /00021101/ [Suspect]
     Active Substance: CYCLOPHOSPHAMIDE
     Indication: BREAST CANCER
     Dosage: 880 MG, 1X/2 WEEKS
     Route: 041
     Dates: start: 20160926, end: 20161108
  6. DECADRON [Suspect]
     Active Substance: DEXAMETHASONE
     Indication: BREAST CANCER
     Dosage: 4 MG, BID
     Route: 048
     Dates: start: 20160928, end: 20160929
  7. DECADRON [Suspect]
     Active Substance: DEXAMETHASONE
     Dosage: 4 MG, BID
     Route: 048
     Dates: start: 20161025, end: 20161026
  8. G-LASTA [Suspect]
     Active Substance: PEGFILGRASTIM
     Indication: COLONY STIMULATING FACTOR THERAPY
     Dosage: 3.6 MG, 1X/2 WEEKS
     Route: 058
     Dates: start: 20160927, end: 20161109
  9. DEXART [Suspect]
     Active Substance: DEXAMETHASONE SODIUM PHOSPHATE
     Dosage: 6.6 MG, 1X/3 WEEKS
     Route: 042
     Dates: start: 20161122, end: 20161122
  10. DECADRON [Suspect]
     Active Substance: DEXAMETHASONE
     Dosage: 4 MG, BID
     Route: 048
     Dates: start: 20161011, end: 20161012

REACTIONS (1)
  - Pneumocystis jirovecii pneumonia [Recovered/Resolved]

NARRATIVE: CASE EVENT DATE: 20161205
